FAERS Safety Report 4820297-3 (Version None)
Quarter: 2005Q4

REPORT INFORMATION
  Report Type: 
  Country: None (occurrence: None)
  Receive Date: 20051014
  Receipt Date: 20050908
  Transmission Date: 20060501
  Serious: No
  Sender: FDA-Public Use
  Company Number: 2005SP002706

PATIENT
  Age: 76 Year
  Sex: Female

DRUGS (9)
  1. LUNESTA [Suspect]
     Indication: INSOMNIA
     Dosage: 1 MG;HS;ORAL
     Route: 048
     Dates: start: 20050902, end: 20050907
  2. ANTIHYPERTENSIVES [Concomitant]
  3. FOSAMAX [Concomitant]
  4. EYE DROPS [Concomitant]
  5. CALCIUM GLUCONATE [Concomitant]
  6. ASPIRIN [Concomitant]
  7. TYLENOL (CAPLET) [Concomitant]
  8. ASCORBIC ACID [Concomitant]
  9. MULTI-VITAMINS [Concomitant]

REACTIONS (2)
  - DRUG INEFFECTIVE [None]
  - INSOMNIA [None]
